FAERS Safety Report 12763736 (Version 1)
Quarter: 2016Q3

REPORT INFORMATION
  Report Type: Spontaneous
  Country: US (occurrence: US)
  Receive Date: 20160915
  Receipt Date: 20160915
  Transmission Date: 20161109
  Serious: No
  Sender: FDA-Public Use
  Company Number: None

PATIENT
  Age: 53 Year
  Sex: Female

DRUGS (1)
  1. GILENYA [Suspect]
     Active Substance: FINGOLIMOD HYDROCHLORIDE
     Indication: MULTIPLE SCLEROSIS
     Route: 048
     Dates: start: 20100720

REACTIONS (15)
  - Muscle spasms [None]
  - White blood cell count decreased [None]
  - Pain of skin [None]
  - Throat irritation [None]
  - Skin texture abnormal [None]
  - Hyperaesthesia [None]
  - Haematocrit decreased [None]
  - Dyspnoea [None]
  - Haemoglobin decreased [None]
  - Blood iron decreased [None]
  - Hypoaesthesia [None]
  - Pruritus [None]
  - Anxiety [None]
  - Red blood cell count decreased [None]
  - Rash [None]

NARRATIVE: CASE EVENT DATE: 20160720
